FAERS Safety Report 5401559-8 (Version None)
Quarter: 2007Q3

REPORT INFORMATION
  Report Type: 
  Country: None (occurrence: None)
  Receive Date: 20070731
  Receipt Date: 20070719
  Transmission Date: 20080115
  Serious: Yes (Other)
  Sender: FDA-Public Use
  Company Number: US-SANOFI-SYNTHELABO-A03200704712

PATIENT
  Age: 66 Year
  Sex: Female

DRUGS (3)
  1. ALEVE [Concomitant]
     Dosage: UNK
     Route: 048
  2. PROZAC [Concomitant]
     Dosage: UNK
     Route: 048
  3. AMBIEN [Suspect]
     Indication: INSOMNIA
     Route: 048

REACTIONS (5)
  - AMNESIA [None]
  - IMPAIRED DRIVING ABILITY [None]
  - OVERDOSE [None]
  - ROAD TRAFFIC ACCIDENT [None]
  - SOMNAMBULISM [None]
